FAERS Safety Report 8018256-5 (Version None)
Quarter: 2012Q1

REPORT INFORMATION
  Report Type: 
  Country: None (occurrence: None)
  Receive Date: 20120103
  Receipt Date: 20111230
  Transmission Date: 20120608
  Serious: Yes (Life-Threatening, Other)
  Sender: FDA-Public Use
  Company Number: US-BAYER-2011-032064

PATIENT
  Age: 48 Year
  Sex: Female
  Weight: 58.05 kg

DRUGS (11)
  1. CALTRATE [CALCIUM CARBONATE] [Concomitant]
     Indication: SKELETAL INJURY
     Dosage: UNK UNK, QD
  2. YAZ [Suspect]
     Indication: MENSTRUATION IRREGULAR
  3. PANTOPRAZOLE [Concomitant]
     Indication: GASTROOESOPHAGEAL REFLUX DISEASE
     Dosage: UNK
     Dates: start: 20090101, end: 20100101
  4. MULTI-VITAMIN [Concomitant]
     Indication: GENERAL PHYSICAL HEALTH DETERIORATION
     Dosage: UNK UNK, QD
  5. VERAMYST [Concomitant]
     Route: 045
  6. SYMBICORT [Concomitant]
     Indication: ASTHMA
     Dosage: UNK
     Dates: start: 20010101
  7. NASONEX [Concomitant]
     Indication: MULTIPLE ALLERGIES
     Dosage: UNK
     Dates: start: 20010101
  8. YAZ [Suspect]
     Indication: PREMENSTRUAL SYNDROME
     Dosage: UNK
     Dates: start: 20090724, end: 20091201
  9. SINGULAIR [Concomitant]
     Indication: ASTHMA
     Dosage: UNK
     Dates: start: 20010101
  10. BONIVA [Concomitant]
     Indication: OSTEOPENIA
     Dosage: UNK
     Dates: start: 20090101, end: 20100101
  11. ALLEGRA [Concomitant]
     Indication: MULTIPLE ALLERGIES
     Dosage: UNK
     Dates: start: 20010101

REACTIONS (7)
  - PAIN IN EXTREMITY [None]
  - OEDEMA PERIPHERAL [None]
  - PAIN [None]
  - INJURY [None]
  - DEEP VEIN THROMBOSIS [None]
  - ERYTHEMA [None]
  - CEREBROVASCULAR ACCIDENT [None]
